FAERS Safety Report 6936668-5 (Version None)
Quarter: 2010Q3

REPORT INFORMATION
  Report Type: 
  Country: None (occurrence: None)
  Receive Date: 20100823
  Receipt Date: 20100813
  Transmission Date: 20110219
  Serious: Yes (Other)
  Sender: FDA-Public Use
  Company Number: US-ABBOTT-10P-163-0663913-00

PATIENT
  Sex: Male

DRUGS (1)
  1. LUPRON DEPOT [Suspect]
     Indication: PRODUCT USED FOR UNKNOWN INDICATION

REACTIONS (9)
  - ASTHENIA [None]
  - ENTERITIS [None]
  - FATIGUE [None]
  - LOSS OF LIBIDO [None]
  - MUSCLE ATROPHY [None]
  - NEOPLASM MALIGNANT [None]
  - POLLAKIURIA [None]
  - RENAL MASS [None]
  - URINE FLOW DECREASED [None]
